FAERS Safety Report 6554231-5 (Version None)
Quarter: 2010Q1

REPORT INFORMATION
  Report Type: 
  Country: None (occurrence: None)
  Receive Date: 20100122
  Receipt Date: 20100106
  Transmission Date: 20100710
  Serious: Yes (Death, Hospitalization)
  Sender: FDA-Public Use
  Company Number: 2010AC000034

PATIENT
  Age: 76 Year
  Sex: Female
  Weight: 55.3388 kg

DRUGS (31)
  1. DIGOXIN [Suspect]
     Dosage: PO
     Route: 048
  2. SYNTHROID [Concomitant]
  3. MULTI-VITAMINS [Concomitant]
  4. PREDNISONE [Concomitant]
  5. ASPIRIN [Concomitant]
  6. AMIODARONE HCL [Concomitant]
  7. FERROUS SULFATE TAB [Concomitant]
  8. SINGULAIR [Concomitant]
  9. SPIRIVA [Concomitant]
  10. LEXAPRO [Concomitant]
  11. COMBIVENT [Concomitant]
  12. LISINOPRIL [Concomitant]
  13. ATORVASTATIN [Concomitant]
  14. OS-CAL [Concomitant]
  15. FLOVENT [Concomitant]
  16. FORADIL [Concomitant]
  17. ALBUTEROL [Concomitant]
  18. LACTINEX [Concomitant]
  19. CEFPODOXIME PROXETIL [Concomitant]
  20. ACETAMINOPHEN [Concomitant]
  21. GUAIFENESIN [Concomitant]
  22. METOCLOPRAMIDE [Concomitant]
  23. NYSTATIN [Concomitant]
  24. ROCEPHIN [Concomitant]
  25. ZITHROMAX [Concomitant]
  26. SOLD-MEDROL [Concomitant]
  27. LORAZEPAM [Concomitant]
  28. HEPARIN [Concomitant]
  29. CALCIUM [Concomitant]
  30. LEVOTHYROXINE SODIUM [Concomitant]
  31. COMBIVENT [Concomitant]

REACTIONS (9)
  - ASTHMA [None]
  - CHRONIC OBSTRUCTIVE PULMONARY DISEASE [None]
  - CONDUCTION DISORDER [None]
  - ECONOMIC PROBLEM [None]
  - EMOTIONAL DISORDER [None]
  - INJURY [None]
  - PAIN [None]
  - RESPIRATORY FAILURE [None]
  - RESPIRATORY TRACT INFECTION [None]
